FAERS Safety Report 14686768 (Version 6)
Quarter: 2019Q1

REPORT INFORMATION
  Report Type: Spontaneous
  Country: US (occurrence: US)
  Receive Date: 20180327
  Receipt Date: 20190228
  Transmission Date: 20190417
  Serious: Yes (Death, Hospitalization)
  Sender: FDA-Public Use
  Company Number: US-ACTELION-A-NJ2018-169720

PATIENT
  Sex: Female

DRUGS (2)
  1. TRACLEER [Suspect]
     Active Substance: BOSENTAN
     Indication: PULMONARY ARTERIAL HYPERTENSION
     Dosage: 125 MG, BID
     Route: 048
     Dates: end: 201812
  2. WARFARIN [Concomitant]
     Active Substance: WARFARIN

REACTIONS (12)
  - Lung infection [Fatal]
  - Pulmonary arterial hypertension [Fatal]
  - Nasopharyngitis [Unknown]
  - Therapy cessation [Unknown]
  - Fatigue [Unknown]
  - Chest pain [Unknown]
  - Palpitations [Unknown]
  - Cough [Unknown]
  - Asthenia [Unknown]
  - Blood potassium decreased [Unknown]
  - Malaise [Unknown]
  - Dyspnoea [Unknown]
